FAERS Safety Report 18797821 (Version 1)
Quarter: 2021Q1

REPORT INFORMATION
  Report Type: Other
  Country: FR (occurrence: FR)
  Receive Date: 20210128
  Receipt Date: 20210128
  Transmission Date: 20210419
  Serious: Yes (Hospitalization)
  Sender: FDA-Public Use
  Company Number: FR-CADILA HEALTHCARE LIMITED-FR-ZYDUS-061363

PATIENT

DRUGS (1)
  1. PAROXETINE. [Suspect]
     Active Substance: PAROXETINE
     Indication: DEPRESSION
     Dosage: 10 MILLIGRAM
     Route: 064

REACTIONS (5)
  - Disseminated intravascular coagulation [Recovered/Resolved]
  - Thrombocytopenia [Recovered/Resolved]
  - Hepatocellular injury [Recovered/Resolved]
  - Shock haemorrhagic [Recovered/Resolved]
  - Subgaleal haematoma [Recovering/Resolving]

NARRATIVE: CASE EVENT DATE: 20201123
